FAERS Safety Report 26197095 (Version 1)
Quarter: 2025Q4

REPORT INFORMATION
  Report Type: Spontaneous
  Country: PA (occurrence: PA)
  Receive Date: 20251224
  Receipt Date: 20251224
  Transmission Date: 20260117
  Serious: Yes (Other)
  Sender: SANDOZ
  Company Number: PA-002147023-NVSC2025PA035114

PATIENT
  Sex: Female

DRUGS (4)
  1. FULVESTRANT [Suspect]
     Active Substance: FULVESTRANT
     Indication: Breast cancer metastatic
     Dosage: 1 DOSAGE FORM (INJECTABLE SOLUTION / INJECTION) (GLUTEUS)
  2. KISQALI [Suspect]
     Active Substance: RIBOCICLIB SUCCINATE
     Indication: Breast cancer metastatic
     Dosage: 600 MG, QD (3 DOSAGE FORM)
     Dates: start: 202408, end: 202502
  3. KISQALI [Suspect]
     Active Substance: RIBOCICLIB SUCCINATE
     Dosage: UNK
  4. ANASTROZOLE [Concomitant]
     Active Substance: ANASTROZOLE
     Indication: Breast cancer
     Dosage: UNK

REACTIONS (25)
  - Metastases to ovary [Unknown]
  - Metastases to stomach [Unknown]
  - Metastases to pelvis [Unknown]
  - Metastases to bone [Unknown]
  - Discouragement [Unknown]
  - Gait inability [Unknown]
  - Hypokinesia [Unknown]
  - Inflammation [Unknown]
  - Sensory loss [Unknown]
  - Abdominal discomfort [Unknown]
  - Fall [Unknown]
  - Malaise [Unknown]
  - Spinal pain [Unknown]
  - Pain [Unknown]
  - Spinal disorder [Unknown]
  - Back injury [Unknown]
  - Influenza [Unknown]
  - Nervousness [Unknown]
  - Sleep disorder [Unknown]
  - Dizziness [Unknown]
  - Back pain [Unknown]
  - Headache [Unknown]
  - Pain in extremity [Unknown]
  - Arthralgia [Unknown]
  - Nausea [Unknown]
